FAERS Safety Report 17313334 (Version 1)
Quarter: 2020Q1

REPORT INFORMATION
  Report Type: Spontaneous
  Country: US (occurrence: US)
  Receive Date: 20200123
  Receipt Date: 20200123
  Transmission Date: 20200409
  Serious: Yes (Life-Threatening)
  Sender: FDA-Public Use
  Company Number: None

PATIENT
  Age: 44 Year
  Sex: Female
  Weight: 73.8 kg

DRUGS (5)
  1. WIXELA INHUB [Suspect]
     Active Substance: FLUTICASONE PROPIONATE\SALMETEROL XINAFOATE
     Indication: ASTHMA
     Dosage: ?          QUANTITY:1 INHALATION(S);?
     Route: 055
     Dates: start: 20200102, end: 20200122
  2. WIXEL ADVAIR [Concomitant]
  3. WOMENS ONE A DAY VITAMINS [Concomitant]
  4. PROAIR HFA [Concomitant]
     Active Substance: ALBUTEROL SULFATE
  5. NATURE MADE VITAMIN B STRESS COMPLEX [Concomitant]

REACTIONS (6)
  - Dizziness [None]
  - Drug ineffective [None]
  - Product substitution issue [None]
  - Choking sensation [None]
  - Insurance issue [None]
  - Palpitations [None]

NARRATIVE: CASE EVENT DATE: 20200103
